FAERS Safety Report 20067453 (Version 2)
Quarter: 2022Q1

REPORT INFORMATION
  Report Type: Spontaneous
  Country: FR (occurrence: FR)
  Receive Date: 20211115
  Receipt Date: 20220131
  Transmission Date: 20220424
  Serious: Yes (Hospitalization)
  Sender: FDA-Public Use
  Company Number: FR-AFSSAPS-LY202112238

PATIENT
  Age: 36 Year
  Sex: Male

DRUGS (1)
  1. TADALAFIL [Suspect]
     Active Substance: TADALAFIL
     Indication: Aphrodisiac therapy
     Dosage: 1 DOSAGE FORM, UNK
     Route: 048
     Dates: start: 20210831

REACTIONS (1)
  - Priapism [Recovered/Resolved with Sequelae]

NARRATIVE: CASE EVENT DATE: 20210901
